FAERS Safety Report 10798949 (Version 1)
Quarter: 2015Q1

REPORT INFORMATION
  Report Type: Spontaneous
  Country: US (occurrence: US)
  Receive Date: 20150216
  Receipt Date: 20150216
  Transmission Date: 20150721
  Serious: No
  Sender: FDA-Public Use
  Company Number: US-ALLERGAN-1405933US

PATIENT
  Sex: Female

DRUGS (9)
  1. LIPITOR [Concomitant]
     Active Substance: ATORVASTATIN CALCIUM
     Indication: BLOOD CHOLESTEROL INCREASED
     Dosage: UNK
     Route: 048
  2. MIRALAX [Concomitant]
     Active Substance: POLYETHYLENE GLYCOL 3350
     Indication: CONSTIPATION
     Dosage: UNK
     Route: 048
  3. SYSTANE ULTRA [Concomitant]
     Active Substance: POLYETHYLENE GLYCOL 400\PROPYLENE GLYCOL
     Indication: DRY EYE
     Dosage: UNK
     Route: 047
     Dates: start: 2013
  4. ALIGN [Concomitant]
     Active Substance: BIFIDOBACTERIUM LONGUM SUBSP. INFANTIS
     Indication: PROPHYLAXIS
     Dosage: UNK
     Route: 048
  5. BABY ASA [Concomitant]
     Active Substance: ASPIRIN
     Dosage: UNK
     Route: 048
  6. VALIUM [Concomitant]
     Active Substance: DIAZEPAM
     Indication: SLEEP DISORDER
     Dosage: UNK UNK, QHS
     Route: 048
  7. CITRUCEL [Concomitant]
     Active Substance: METHYLCELLULOSE (4000 MPA.S)
     Indication: PROPHYLAXIS
     Dosage: UNK
     Route: 048
  8. SYSTANE GEL [Concomitant]
     Indication: DRY EYE
     Dosage: 2 GTT, QHS
     Route: 047
     Dates: start: 2013
  9. RESTASIS [Suspect]
     Active Substance: CYCLOSPORINE
     Indication: DRY EYE
     Dosage: UNK
     Route: 047
     Dates: start: 2013

REACTIONS (3)
  - Eye irritation [Not Recovered/Not Resolved]
  - Ocular discomfort [Not Recovered/Not Resolved]
  - Incorrect dose administered [Unknown]
